FAERS Safety Report 4724002-0 (Version None)
Quarter: 2005Q3

REPORT INFORMATION
  Report Type: 
  Country: None (occurrence: None)
  Receive Date: 20050721
  Receipt Date: 20050713
  Transmission Date: 20060218
  Serious: Yes (Other)
  Sender: FDA-Public Use
  Company Number: 2005BH000623

PATIENT
  Age: 24 Year
  Sex: Male
  Weight: 88.905 kg

DRUGS (2)
  1. SODIUM CITRATE [Suspect]
     Dosage: ONCE
     Dates: start: 20050706, end: 20050706
  2. SODIUM CHLORIDE 0.9% [Suspect]
     Dosage: ONCE
     Dates: start: 20050706, end: 20050706

REACTIONS (6)
  - ASTHENIA [None]
  - BLOOD URINE PRESENT [None]
  - DIZZINESS [None]
  - MEDICAL DEVICE COMPLICATION [None]
  - PROCEDURAL COMPLICATION [None]
  - RED BLOOD CELL COUNT DECREASED [None]
